FAERS Safety Report 4615189-9 (Version None)
Quarter: 2005Q1

REPORT INFORMATION
  Report Type: 
  Country: None (occurrence: None)
  Receive Date: 20050315
  Receipt Date: 20050301
  Transmission Date: 20050727
  Serious: Yes (Death)
  Sender: FDA-Public Use
  Company Number: US_0503113771

PATIENT
  Age: 38 Year

DRUGS (3)
  1. FLUOXETINE HCL [Suspect]
     Dates: end: 20030101
  2. METHADONE HCL [Concomitant]
  3. GABAPENTIN [Concomitant]

REACTIONS (5)
  - ADVERSE DRUG REACTION [None]
  - CARDIAC ARREST [None]
  - DRUG TOXICITY [None]
  - MULTIPLE DRUG OVERDOSE [None]
  - RESPIRATORY ARREST [None]
